FAERS Safety Report 7551261-1 (Version None)
Quarter: 2011Q2

REPORT INFORMATION
  Report Type: 
  Country: None (occurrence: None)
  Receive Date: 20110616
  Receipt Date: 20110603
  Transmission Date: 20111010
  Serious: Yes (Hospitalization)
  Sender: FDA-Public Use
  Company Number: PHHY2011TW48555

PATIENT
  Age: 79 Year
  Sex: Female

DRUGS (1)
  1. ZOLEDRONIC ACID [Suspect]
     Indication: OSTEOPOROSIS POSTMENOPAUSAL
     Dosage: 5 MG/100 ML
     Route: 042
     Dates: start: 20110416

REACTIONS (3)
  - INTERVERTEBRAL DISC COMPRESSION [None]
  - DRUG INEFFECTIVE [None]
  - OSTEOPOROSIS [None]
